FAERS Safety Report 7228887-8 (Version None)
Quarter: 2011Q1

REPORT INFORMATION
  Report Type: 
  Country: None (occurrence: None)
  Receive Date: 20110117
  Receipt Date: 20110105
  Transmission Date: 20110831
  Serious: Yes (Hospitalization)
  Sender: FDA-Public Use
  Company Number: US-ELI_LILLY_AND_COMPANY-US201004002193

PATIENT
  Sex: Female

DRUGS (12)
  1. PRAVASTATIN SODIUM [Concomitant]
     Dosage: 80 MG, DAILY (1/D)
  2. AMLODIPINE BESYLATE [Concomitant]
     Dosage: 10 MG, DAILY (1/D)
  3. CLONIDINE [Concomitant]
     Dosage: 0.1 D/F, WEEKLY (1/W)
  4. ASPIRIN [Concomitant]
     Dosage: 81 MG, 2/D
  5. FORTEO [Suspect]
     Dosage: 20 UG, DAILY (1/D)
     Route: 065
  6. LISINOPRIL [Concomitant]
     Dosage: 5 MG, 2/D
  7. PYRIDOSTIGMINE BROMIDE [Concomitant]
     Dosage: 30 MG, 2/D
  8. DIOVAN [Concomitant]
     Dosage: 160 MG, DAILY (1/D)
  9. FORTEO [Suspect]
     Indication: OSTEOPOROSIS
     Dosage: 20 UG, DAILY (1/D)
     Route: 065
     Dates: start: 20100314
  10. FORTEO [Suspect]
     Dosage: 20 UG, DAILY (1/D)
     Route: 065
  11. CARVEDILOL [Concomitant]
     Dosage: 6.25 MG, 2/D
  12. CENTRUM SILVER [Concomitant]
     Dosage: UNK, UNKNOWN

REACTIONS (4)
  - PAROSMIA [None]
  - DIARRHOEA [None]
  - HERNIA [None]
  - PAIN [None]
